FAERS Safety Report 16858412 (Version 1)
Quarter: 2019Q3

REPORT INFORMATION
  Report Type: Spontaneous
  Country: US (occurrence: US)
  Receive Date: 20190926
  Receipt Date: 20190926
  Transmission Date: 20191005
  Serious: No
  Sender: FDA-Public Use
  Company Number: PHEH2019US039636

PATIENT
  Sex: Female

DRUGS (1)
  1. PIQRAY [Suspect]
     Active Substance: ALPELISIB
     Indication: METASTASES TO BONE
     Dosage: 300 MG, QD
     Route: 048
     Dates: start: 20190831

REACTIONS (1)
  - Rash [Recovering/Resolving]
